FAERS Safety Report 10578273 (Version 1)
Quarter: 2014Q4

REPORT INFORMATION
  Report Type: Spontaneous
  Country: TR (occurrence: None)
  Receive Date: 20141111
  Receipt Date: 20141111
  Transmission Date: 20150529
  Serious: Yes (Disabling)
  Sender: FDA-Public Use
  Company Number: None

PATIENT
  Age: 21 Year
  Sex: Female
  Weight: 62 kg

DRUGS (1)
  1. NAPROSYN [Suspect]
     Active Substance: NAPROXEN
     Indication: OEDEMA
     Dosage: 1 PILL A DAY
     Route: 048
     Dates: start: 20141105, end: 20141110

REACTIONS (2)
  - Muscle twitching [None]
  - Irritability [None]

NARRATIVE: CASE EVENT DATE: 20141105
